FAERS Safety Report 5140243-5 (Version None)
Quarter: 2006Q4

REPORT INFORMATION
  Report Type: 
  Country: None (occurrence: None)
  Receive Date: 20061031
  Receipt Date: 20061019
  Transmission Date: 20070319
  Serious: Yes (Hospitalization)
  Sender: FDA-Public Use
  Company Number: PHEH2006US13098

PATIENT
  Age: 63 Year
  Sex: Female

DRUGS (1)
  1. TRILEPTAL [Suspect]
     Indication: SEASONAL AFFECTIVE DISORDER
     Dosage: 150 MG, QHS
     Route: 048
     Dates: start: 20060401, end: 20061001

REACTIONS (2)
  - DIVERTICULITIS [None]
  - NEUTROPHIL COUNT DECREASED [None]
